FAERS Safety Report 6545947-5 (Version None)
Quarter: 2010Q1

REPORT INFORMATION
  Report Type: 
  Country: None (occurrence: None)
  Receive Date: 20100121
  Receipt Date: 20100113
  Transmission Date: 20100710
  Serious: Yes (Other)
  Sender: FDA-Public Use
  Company Number: FR-MERCK-1001FRA00024

PATIENT
  Age: 65 Year
  Sex: Female

DRUGS (17)
  1. EMEND [Suspect]
     Indication: PREMEDICATION
     Route: 048
     Dates: start: 20090710, end: 20090710
  2. EMEND [Suspect]
     Route: 048
     Dates: start: 20090711, end: 20090711
  3. IFOSFAMIDE [Suspect]
     Route: 042
     Dates: start: 20090710, end: 20090711
  4. DOXORUBICIN HYDROCHLORIDE [Concomitant]
     Route: 042
     Dates: start: 20090711
  5. ACETAMINOPHEN [Concomitant]
     Route: 048
  6. VENLAFAXINE HYDROCHLORIDE [Concomitant]
     Route: 048
  7. BROMAZEPAM [Concomitant]
     Route: 048
  8. TINZAPARIN SODIUM [Concomitant]
     Route: 058
  9. ONDANSETRON HYDROCHLORIDE [Concomitant]
     Route: 042
     Dates: start: 20090710, end: 20090711
  10. METHYLPREDNISOLONE SODIUM SUCCINATE [Concomitant]
     Route: 042
     Dates: start: 20090710, end: 20090711
  11. MESNA [Concomitant]
     Route: 042
     Dates: start: 20090710, end: 20090710
  12. MESNA [Concomitant]
     Route: 042
     Dates: start: 20090711, end: 20090711
  13. FUROSEMIDE [Concomitant]
     Route: 042
  14. DEXTROSE AND POTASSIUM CHLORIDE AND SODIUM CHLORIDE [Concomitant]
     Route: 042
     Dates: start: 20090710, end: 20090711
  15. METOCLOPRAMIDE HYDROCHLORIDE [Concomitant]
     Indication: NAUSEA
     Route: 065
  16. PEGFILGRASTIM [Concomitant]
     Route: 042
     Dates: start: 20090711, end: 20090711
  17. HEPARIN LOW MOLECULAR WEIGHT [Concomitant]
     Indication: DEEP VEIN THROMBOSIS
     Route: 065

REACTIONS (1)
  - CYTOLYTIC HEPATITIS [None]
